FAERS Safety Report 7398826-8 (Version None)
Quarter: 2011Q2

REPORT INFORMATION
  Report Type: 
  Country: None (occurrence: None)
  Receive Date: 20110404
  Receipt Date: 20110404
  Transmission Date: 20111010
  Serious: Yes (Other)
  Sender: FDA-Public Use
  Company Number: None

PATIENT
  Age: 57 Year
  Sex: Female
  Weight: 72.5755 kg

DRUGS (1)
  1. BACTRIM DS [Suspect]
     Indication: STAPHYLOCOCCAL INFECTION
     Dosage: TWO TABS EVERY 12HRS PO
     Route: 048
     Dates: start: 20110302, end: 20110305

REACTIONS (8)
  - PALPITATIONS [None]
  - TREMOR [None]
  - HYPOGLYCAEMIA [None]
  - ABDOMINAL DISCOMFORT [None]
  - HYPERHIDROSIS [None]
  - OVERDOSE [None]
  - INITIAL INSOMNIA [None]
  - FEELING ABNORMAL [None]
